FAERS Safety Report 9612509 (Version 1)
Quarter: 2013Q4

REPORT INFORMATION
  Report Type: Spontaneous
  Country: JP (occurrence: JP)
  Receive Date: 20131010
  Receipt Date: 20131010
  Transmission Date: 20140711
  Serious: Yes (Other)
  Sender: FDA-Public Use
  Company Number: JP-JNJFOC-20131003977

PATIENT
  Age: 69 Year
  Sex: Female

DRUGS (7)
  1. TRAMCET [Suspect]
     Indication: PAIN
     Dosage: 3 PER 1 DAY
     Route: 048
     Dates: start: 20130919, end: 20130925
  2. TRAMCET [Suspect]
     Indication: PAIN
     Dosage: 2 PER 1 DAY
     Route: 048
     Dates: start: 20130908, end: 20130918
  3. TRAMCET [Suspect]
     Indication: PAIN
     Dosage: 1 PER 1 DAY
     Route: 048
     Dates: start: 20130905, end: 20130907
  4. AMLODIPINE  BESILATE [Concomitant]
     Dosage: 1 PER 1 DAY
     Route: 048
  5. DIOVAN [Concomitant]
     Dosage: 1 PER 1 DAY
     Route: 048
  6. PRIMPERAN [Concomitant]
     Dosage: 3 PER 1 DAY
     Route: 048
  7. MAGLAX [Concomitant]
     Dosage: 3 PER 1 DAY
     Route: 048

REACTIONS (1)
  - Asthma [Recovered/Resolved]
